FAERS Safety Report 8533822-6 (Version None)
Quarter: 2012Q3

REPORT INFORMATION
  Report Type: 
  Country: None (occurrence: None)
  Receive Date: 20120705
  Receipt Date: 20120619
  Transmission Date: 20120928
  Serious: Yes (Hospitalization)
  Sender: FDA-Public Use
  Company Number: 2012PROUSA01478

PATIENT
  Age: 77 Year
  Sex: Male

DRUGS (3)
  1. ERYTHROPOIETIN (ERYTHROPOIETIN) [Concomitant]
  2. DIGOXIN [Concomitant]
  3. PROVENGE [Suspect]
     Indication: PROSTATE CANCER METASTATIC
     Dosage: 250 ML, SINGLE, INTRAVENOUS
     Route: 042
     Dates: start: 20120524, end: 20120524

REACTIONS (7)
  - LETHARGY [None]
  - DEVICE RELATED SEPSIS [None]
  - CHILLS [None]
  - PYREXIA [None]
  - ASTHENIA [None]
  - HYPERCALCAEMIA [None]
  - RENAL FAILURE ACUTE [None]
